FAERS Safety Report 4303763-9 (Version None)
Quarter: 2004Q1

REPORT INFORMATION
  Report Type: 
  Country: None (occurrence: None)
  Receive Date: 20040225
  Receipt Date: 20040213
  Transmission Date: 20041129
  Serious: Yes (Hospitalization, Other)
  Sender: FDA-Public Use
  Company Number: PHEH2004US01959

PATIENT
  Age: 55 Year
  Sex: Female

DRUGS (6)
  1. ZELNORM [Suspect]
     Indication: CONSTIPATION
     Dosage: 6 MG, BID
     Route: 048
     Dates: start: 20031002, end: 20031001
  2. ZELNORM [Suspect]
     Dosage: 6 MG, TID
     Route: 048
     Dates: start: 20031030, end: 20031101
  3. FOSAMAX [Concomitant]
     Indication: OSTEOPENIA
  4. MIRALAX [Concomitant]
  5. PREMARIN [Concomitant]
     Indication: HORMONE REPLACEMENT THERAPY
  6. ACETYLSALICYLIC ACID SRT [Concomitant]

REACTIONS (6)
  - COLECTOMY PARTIAL [None]
  - CONSTIPATION [None]
  - DRUG INEFFECTIVE [None]
  - INTESTINAL FUNCTIONAL DISORDER [None]
  - IRRITABLE BOWEL SYNDROME [None]
  - MELANOSIS COLI [None]
